FAERS Safety Report 11290010 (Version 2)
Quarter: 2015Q3

REPORT INFORMATION
  Report Type: Spontaneous
  Country: BR (occurrence: BR)
  Receive Date: 20150721
  Receipt Date: 20150820
  Transmission Date: 20151125
  Serious: Yes (Hospitalization, Other)
  Sender: FDA-Public Use
  Company Number: PHHY2015BR087233

PATIENT
  Sex: Female

DRUGS (1)
  1. FORASEQ [Suspect]
     Active Substance: BUDESONIDE\FORMOTEROL FUMARATE
     Indication: BRONCHITIS
     Dosage: ONE CAPSULE OF TREATMENT 1 AND ONE CAPSULE OF TREATMENT 2
     Route: 055

REACTIONS (12)
  - Gastrooesophageal reflux disease [Not Recovered/Not Resolved]
  - Bone disorder [Not Recovered/Not Resolved]
  - Varicella [Not Recovered/Not Resolved]
  - Salivary hypersecretion [Unknown]
  - Weight decreased [Not Recovered/Not Resolved]
  - Pain in extremity [Not Recovered/Not Resolved]
  - Agitation [Not Recovered/Not Resolved]
  - Cardiac disorder [Unknown]
  - Erysipelas [Not Recovered/Not Resolved]
  - Movement disorder [Not Recovered/Not Resolved]
  - Concomitant disease aggravated [Unknown]
  - Gait disturbance [Not Recovered/Not Resolved]
